FAERS Safety Report 24094407 (Version 2)
Quarter: 2024Q3

REPORT INFORMATION
  Report Type: Spontaneous
  Country: US (occurrence: US)
  Receive Date: 20240716
  Receipt Date: 20240725
  Transmission Date: 20241016
  Serious: Yes (Hospitalization, Disabling, Other)
  Sender: AUROBINDO
  Company Number: US-MLMSERVICE-20240628-PI116687-00072-1

PATIENT
  Age: 38 Year
  Sex: Female
  Weight: 63.5 kg

DRUGS (6)
  1. BUPIVACAINE HYDROCHLORIDE [Suspect]
     Active Substance: BUPIVACAINE HYDROCHLORIDE
     Indication: Spinal anaesthesia
     Dosage: SINGLE-SHOT WITH 25-GAUGE PENCIL-TIP NEEDLE (1 TOTAL)
     Route: 008
  2. FENTANYL [Suspect]
     Active Substance: FENTANYL\FENTANYL CITRATE
     Indication: Spinal anaesthesia
     Dosage: SINGLE-SHOT WITH 25-GAUGE PENCIL-TIP NEEDLE (1 TOTAL)
     Route: 008
  3. MORPHINE [Suspect]
     Active Substance: MORPHINE
     Indication: Spinal anaesthesia
     Dosage: SINGLE-SHOT WITH 25-GAUGE PENCIL-TIP NEEDLE (1 TOTAL)
     Route: 008
  4. GABAPENTIN [Concomitant]
     Active Substance: GABAPENTIN
     Indication: Product used for unknown indication
     Dosage: UNK
     Route: 065
  5. ASPIRIN [Concomitant]
     Active Substance: ASPIRIN
     Indication: Product used for unknown indication
     Dosage: UNK
     Route: 065
  6. METHYLPREDNISOLONE [Concomitant]
     Active Substance: METHYLPREDNISOLONE
     Indication: Product used for unknown indication
     Dosage: UNK
     Route: 065

REACTIONS (2)
  - Anterior spinal artery syndrome [Recovering/Resolving]
  - Spinal cord infarction [Recovering/Resolving]
